FAERS Safety Report 4718139-X (Version None)
Quarter: 2005Q3

REPORT INFORMATION
  Report Type: 
  Country: None (occurrence: None)
  Receive Date: 20050718
  Receipt Date: 20050718
  Transmission Date: 20060218
  Serious: Yes (Hospitalization, Disabling)
  Sender: FDA-Public Use
  Company Number: None

PATIENT
  Age: 65 Year
  Sex: Male
  Weight: 96.1626 kg

DRUGS (5)
  1. MAXAQUIN [Suspect]
     Indication: PROSTATIC DISORDER
     Dosage: 7-14 DAYS
     Dates: start: 19950301, end: 20050305
  2. LEVAQUIN [Suspect]
  3. CIPROFLOXACIN HCL [Suspect]
  4. TEQUIN [Suspect]
  5. DEPO-TESTOSTERONE [Concomitant]

REACTIONS (6)
  - CARDIAC OPERATION [None]
  - CYSTITIS [None]
  - PAIN [None]
  - POSTOPERATIVE INFECTION [None]
  - PROSTATIC OPERATION [None]
  - TENDON RUPTURE [None]
